FAERS Safety Report 4882588-X (Version None)
Quarter: 2006Q1

REPORT INFORMATION
  Report Type: 
  Country: None (occurrence: None)
  Receive Date: 20060117
  Receipt Date: 20050816
  Transmission Date: 20060701
  Serious: Yes (Hospitalization)
  Sender: FDA-Public Use
  Company Number: US-MERCK-0508USA03060

PATIENT
  Age: 65 Year
  Sex: Female
  Weight: 66 kg

DRUGS (3)
  1. VIOXX [Suspect]
     Indication: ARTHRITIS
     Route: 048
     Dates: start: 20000101, end: 20040925
  2. MAXZIDE [Concomitant]
     Route: 065
  3. ATENOLOL [Concomitant]
     Route: 048

REACTIONS (18)
  - ANOREXIA [None]
  - ARTERIOSCLEROSIS CORONARY ARTERY [None]
  - ATRIOVENTRICULAR BLOCK FIRST DEGREE [None]
  - BLOOD PRESSURE INCREASED [None]
  - BUNDLE BRANCH BLOCK RIGHT [None]
  - CHEST PAIN [None]
  - CONTUSION [None]
  - CYSTOCELE [None]
  - EJECTION FRACTION DECREASED [None]
  - MYOCARDIAL INFARCTION [None]
  - NORMOCHROMIC NORMOCYTIC ANAEMIA [None]
  - RENAL FAILURE ACUTE [None]
  - ROAD TRAFFIC ACCIDENT [None]
  - SINUS BRADYCARDIA [None]
  - SYNCOPE VASOVAGAL [None]
  - TRICUSPID VALVE INCOMPETENCE [None]
  - URINARY INCONTINENCE [None]
  - VENTRICULAR HYPERTROPHY [None]
